FAERS Safety Report 21293816 (Version 2)
Quarter: 2022Q4

REPORT INFORMATION
  Report Type: Other
  Country: CA (occurrence: None)
  Receive Date: 20220905
  Receipt Date: 20221006
  Transmission Date: 20230112
  Serious: Yes (Other)
  Sender: FDA-Public Use
  Company Number: CA-ROCHE-3168310

PATIENT
  Sex: Male

DRUGS (1)
  1. OCREVUS [Suspect]
     Active Substance: OCRELIZUMAB
     Indication: Relapsing-remitting multiple sclerosis
     Dosage: 300 MG AT DAY 0 AND 14, THEN 600 MG EVERY 6 MONTH
     Route: 042
     Dates: start: 20220225

REACTIONS (7)
  - Asthenia [Recovering/Resolving]
  - Illness [Not Recovered/Not Resolved]
  - Cellulitis [Recovered/Resolved]
  - Fatigue [Recovering/Resolving]
  - Fibromyalgia [Recovering/Resolving]
  - Electric shock [Recovering/Resolving]
  - Hypoaesthesia [Recovering/Resolving]
